FAERS Safety Report 11569298 (Version 1)
Quarter: 2015Q3

REPORT INFORMATION
  Report Type: Spontaneous
  Country: US (occurrence: US)
  Receive Date: 20150929
  Receipt Date: 20150929
  Transmission Date: 20151125
  Serious: Yes (Hospitalization, Other)
  Sender: FDA-Public Use
  Company Number: US-PFIZER INC-2015318727

PATIENT
  Age: 52 Year
  Sex: Female
  Weight: 103 kg

DRUGS (1)
  1. RELPAX [Suspect]
     Active Substance: ELETRIPTAN HYDROBROMIDE
     Indication: MIGRAINE
     Dosage: 40 MG, UNK

REACTIONS (6)
  - Brain abscess [Unknown]
  - Seizure [Unknown]
  - Loss of consciousness [Unknown]
  - Balance disorder [Unknown]
  - Head injury [Unknown]
  - Vomiting [Unknown]

NARRATIVE: CASE EVENT DATE: 201406
